FAERS Safety Report 8107068 (Version 3)
Quarter: 2013Q4

REPORT INFORMATION
  Report Type: Spontaneous
  Country: US (occurrence: US)
  Receive Date: 20110825
  Receipt Date: 20131125
  Transmission Date: 20140711
  Serious: Yes (Hospitalization, Other)
  Sender: FDA-Public Use
  Company Number: US-BAYER-2011-074998

PATIENT
  Age: 15 Year
  Sex: Female
  Weight: 113.38 kg

DRUGS (5)
  1. YAZ [Suspect]
     Indication: ORAL CONTRACEPTION
     Dosage: UNK
     Dates: start: 2004, end: 2008
  2. YAZ [Suspect]
     Indication: POLYCYSTIC OVARIES
  3. YASMIN [Suspect]
     Indication: ORAL CONTRACEPTION
     Dosage: UNK
     Dates: start: 2004, end: 2008
  4. YASMIN [Suspect]
     Indication: POLYCYSTIC OVARIES
  5. TOPAMAX [Concomitant]
     Dosage: 25 MG, BID
     Dates: start: 2002, end: 2004

REACTIONS (4)
  - Gallbladder injury [None]
  - Injury [None]
  - Pain [None]
  - Biliary dyskinesia [None]
